FAERS Safety Report 18573319 (Version 3)
Quarter: 2020Q4

REPORT INFORMATION
  Report Type: Spontaneous
  Country: SK (occurrence: SK)
  Receive Date: 20201203
  Receipt Date: 20201221
  Transmission Date: 20210114
  Serious: Yes (Other)
  Sender: FDA-Public Use
  Company Number: SK-CELLTRION INC.-2020SK032887

PATIENT

DRUGS (7)
  1. TACROLIMUS. [Suspect]
     Active Substance: TACROLIMUS
     Indication: PRODUCT USED FOR UNKNOWN INDICATION
     Dosage: PULSE THERAPY WITH METHYLPREDNISOLONE
  2. RITUXIMAB (UNKNOWN) [Suspect]
     Active Substance: RITUXIMAB
     Indication: ACUTE ON CHRONIC LIVER FAILURE
  3. METHYLPREDNISOLONE. [Suspect]
     Active Substance: METHYLPREDNISOLONE
     Indication: PRODUCT USED FOR UNKNOWN INDICATION
     Dosage: PULSE THERAPY WITH TACROLIMUS
  4. LITHIUM. [Suspect]
     Active Substance: LITHIUM
     Indication: HYPERTHYROIDISM
     Dosage: STOP DATE: OCT2019
  5. RITUXIMAB. [Suspect]
     Active Substance: RITUXIMAB
     Indication: ACUTE ON CHRONIC LIVER FAILURE
  6. THIAMAZOLE [Suspect]
     Active Substance: METHIMAZOLE
     Dosage: 10 MG/DAY
  7. THIAMAZOLE [Suspect]
     Active Substance: METHIMAZOLE
     Indication: HYPERTHYROIDISM
     Dosage: 30 MG/DAY

REACTIONS (8)
  - Hyperthyroidism [Recovered/Resolved]
  - Disease recurrence [Recovered/Resolved]
  - Renal failure [Recovering/Resolving]
  - Off label use [Unknown]
  - Toxicity to various agents [Unknown]
  - Condition aggravated [Recovering/Resolving]
  - Drug level increased [Unknown]
  - Drug level abnormal [Unknown]

NARRATIVE: CASE EVENT DATE: 201905
